FAERS Safety Report 5604734-2 (Version None)
Quarter: 2008Q1

REPORT INFORMATION
  Report Type: 
  Country: None (occurrence: None)
  Receive Date: 20080128
  Receipt Date: 20080117
  Transmission Date: 20080703
  Serious: Yes (Other)
  Sender: FDA-Public Use
  Company Number: US-JNJFOC-20080105130

PATIENT
  Sex: Male
  Weight: 86.18 kg

DRUGS (11)
  1. DURAGESIC-100 [Suspect]
     Route: 062
  2. DURAGESIC-100 [Suspect]
     Indication: PAIN
     Route: 062
  3. AVINZA [Suspect]
     Indication: PAIN
     Route: 048
  4. LYRICA [Suspect]
     Indication: PAIN
     Route: 048
  5. OXYCODONE [Concomitant]
     Indication: BREAKTHROUGH PAIN
     Dosage: 7.5/ 325MG 1 EVERY 6 TO 8 HOURS
     Route: 048
  6. NORVASC [Concomitant]
     Indication: HYPERTENSION
     Route: 048
  7. TOPROL-XL [Concomitant]
     Indication: HYPERTENSION
     Route: 048
  8. CRESTOR [Concomitant]
     Indication: BLOOD CHOLESTEROL
     Route: 048
  9. LUNESTA [Concomitant]
     Indication: SLEEP DISORDER
     Route: 048
  10. TIZANIDINE HCL [Concomitant]
     Indication: MUSCLE SPASMS
     Route: 048
  11. EFFEXOR XR [Concomitant]
     Indication: DEPRESSION
     Dosage: 3 X 150MG
     Route: 048

REACTIONS (4)
  - HYPERSOMNIA [None]
  - LETHARGY [None]
  - WEIGHT INCREASED [None]
  - WRONG TECHNIQUE IN DRUG USAGE PROCESS [None]
